FAERS Safety Report 6329576-4 (Version None)
Quarter: 2009Q3

REPORT INFORMATION
  Report Type: 
  Country: None (occurrence: None)
  Receive Date: 20090825
  Receipt Date: 20090825
  Transmission Date: 20100115
  Serious: Yes (Hospitalization)
  Sender: FDA-Public Use
  Company Number: None

PATIENT
  Sex: Female
  Weight: 78 kg

DRUGS (3)
  1. REMICADE [Suspect]
     Indication: CROHN'S DISEASE
     Dosage: 5 MG/KG EVERY 8 WEEKS IV
     Route: 042
     Dates: start: 20081101, end: 20090623
  2. LIALDA [Concomitant]
  3. ASACOL [Concomitant]

REACTIONS (2)
  - LUPUS-LIKE SYNDROME [None]
  - PERICARDIAL EFFUSION [None]
